FAERS Safety Report 9670068 (Version 2)
Quarter: 2013Q4

REPORT INFORMATION
  Report Type: Spontaneous
  Country: KR (occurrence: KR)
  Receive Date: 20131105
  Receipt Date: 20131118
  Transmission Date: 20140711
  Serious: Yes (Hospitalization)
  Sender: FDA-Public Use
  Company Number: KR-BAXTER-2013BAX043177

PATIENT
  Age: 32 Year
  Sex: Male
  Weight: 126 kg

DRUGS (10)
  1. EXTRANEAL [Suspect]
     Indication: RENAL FAILURE CHRONIC
     Route: 033
     Dates: start: 20131016, end: 20131021
  2. EXTRANEAL [Suspect]
     Indication: PERITONEAL DIALYSIS
  3. PHYSIONEAL 2.5% [Suspect]
     Indication: RENAL FAILURE CHRONIC
     Route: 033
     Dates: start: 20131002, end: 20131029
  4. PHYSIONEAL 2.5% [Suspect]
     Indication: PERITONEAL DIALYSIS
  5. PHYSIONEAL 4.25% [Suspect]
     Indication: RENAL FAILURE CHRONIC
     Route: 033
     Dates: start: 20131016, end: 20131029
  6. PHYSIONEAL 4.25% [Suspect]
     Indication: PERITONEAL DIALYSIS
  7. LEVOFLOXACIN [Suspect]
     Indication: LOCALISED INFECTION
     Route: 048
     Dates: start: 20130918, end: 20131022
  8. CEFPODOXIME PROXETIL [Suspect]
     Indication: LOCALISED INFECTION
     Route: 048
     Dates: start: 20131008
  9. WARFARIN [Suspect]
     Indication: PRODUCT USED FOR UNKNOWN INDICATION
     Route: 065
  10. WARFARIN SODIUM [Concomitant]
     Indication: THROMBOPHLEBITIS
     Route: 048
     Dates: start: 20130919, end: 20131016

REACTIONS (5)
  - Eosinophilia [Not Recovered/Not Resolved]
  - Local swelling [Not Recovered/Not Resolved]
  - Chills [Recovered/Resolved]
  - Dysgeusia [Recovered/Resolved]
  - Erythema [Not Recovered/Not Resolved]
